FAERS Safety Report 6401187-1 (Version None)
Quarter: 2009Q4

REPORT INFORMATION
  Report Type: 
  Country: None (occurrence: None)
  Receive Date: 20091015
  Receipt Date: 20091001
  Transmission Date: 20100525
  Serious: Yes (Hospitalization, Other)
  Sender: FDA-Public Use
  Company Number: US-ROCHE-649690

PATIENT
  Sex: Male
  Weight: 76.2 kg

DRUGS (2)
  1. PEG-INTERFERON A-2A (RO 25-8310) [Suspect]
     Indication: HEPATITIS C
     Dosage: FORM: PRE-FILLED SYRINGE (PFS), DISCONTINUED IN WEEK 30
     Route: 058
     Dates: start: 20090202, end: 20090828
  2. RIBAVIRIN [Suspect]
     Indication: HEPATITIS C
     Dosage: DISCONTINUED IN WEEK 30
     Route: 065
     Dates: start: 20090202, end: 20090828

REACTIONS (10)
  - ANAEMIA [None]
  - CARDIAC VALVE DISEASE [None]
  - COUGH [None]
  - DECREASED APPETITE [None]
  - DYSGEUSIA [None]
  - DYSPNOEA [None]
  - FATIGUE [None]
  - PALLOR [None]
  - RESPIRATORY TRACT CONGESTION [None]
  - WEIGHT DECREASED [None]
